FAERS Safety Report 4328891-3 (Version None)
Quarter: 2004Q1

REPORT INFORMATION
  Report Type: 
  Country: None (occurrence: None)
  Receive Date: 20040329
  Receipt Date: 20040116
  Transmission Date: 20041129
  Serious: No
  Sender: FDA-Public Use
  Company Number: 04P-163-0247399-00

PATIENT
  Age: 64 Year
  Sex: Female
  Weight: 52.6173 kg

DRUGS (3)
  1. HUMIRA [Suspect]
     Indication: RHEUMATOID ARTHRITIS
     Dosage: 40 MG, 1 IN 2 WK, SUBCUTANEOUS
     Route: 058
     Dates: start: 20030801
  2. ALENDRONATE SODIUM [Concomitant]
  3. GLUCOSAMINE [Concomitant]

REACTIONS (1)
  - BLOOD PRESSURE INCREASED [None]
